FAERS Safety Report 26012217 (Version 1)
Quarter: 2025Q4

REPORT INFORMATION
  Report Type: Spontaneous
  Country: US (occurrence: US)
  Receive Date: 20251107
  Receipt Date: 20251107
  Transmission Date: 20260117
  Serious: No
  Sender: INCYTE
  Company Number: US-EVENT-004799

PATIENT

DRUGS (6)
  1. JAKAFI [Suspect]
     Active Substance: RUXOLITINIB
     Indication: Myelodysplastic syndrome
     Dosage: UNK
     Route: 065
  2. JAKAFI [Suspect]
     Active Substance: RUXOLITINIB
     Dosage: 15 MILLIGRAM, BID
     Route: 065
  3. COLLAGENASE SANTYL [Concomitant]
     Active Substance: COLLAGENASE CLOSTRIDIUM HISTOLYTICUM
     Indication: Wound
     Dosage: UNK
     Route: 065
  4. SILVER NITRATE [Concomitant]
     Active Substance: SILVER NITRATE
     Indication: Wound
     Dosage: UNK
     Route: 065
  5. ANTIBIOTIC OINTMENT [Concomitant]
     Active Substance: NEOMYCIN SULFATE
     Indication: Wound
     Dosage: UNK
     Route: 065
  6. CLOBETASOL [Concomitant]
     Active Substance: CLOBETASOL
     Indication: Wound
     Dosage: UNK
     Route: 065

REACTIONS (2)
  - Skin lesion [Recovering/Resolving]
  - Off label use [Unknown]
